FAERS Safety Report 4388232-2 (Version None)
Quarter: 2004Q2

REPORT INFORMATION
  Report Type: 
  Country: None (occurrence: None)
  Receive Date: 20040625
  Receipt Date: 20040621
  Transmission Date: 20050107
  Serious: Yes (Death)
  Sender: FDA-Public Use
  Company Number: KII-2002-0011453

PATIENT
  Sex: Female

DRUGS (2)
  1. OXYCONTIN [Suspect]
     Dosage: UNK
     Route: 065
  2. VALIUM [Suspect]
     Dosage: UNK
     Route: 065

REACTIONS (2)
  - ASPIRATION [None]
  - MULTIPLE DRUG OVERDOSE [None]
